FAERS Safety Report 13506399 (Version 1)
Quarter: 2017Q2

REPORT INFORMATION
  Report Type: Spontaneous
  Country: US (occurrence: US)
  Receive Date: 20170502
  Receipt Date: 20170502
  Transmission Date: 20170830
  Serious: No
  Sender: FDA-Public Use
  Company Number: US-ROCHE-1344594

PATIENT
  Sex: Female

DRUGS (7)
  1. AVASTIN [Suspect]
     Active Substance: BEVACIZUMAB
     Indication: OVARIAN CANCER
     Route: 065
     Dates: start: 201312
  2. CLARITIN [Concomitant]
     Active Substance: LORATADINE
     Indication: SEASONAL ALLERGY
  3. LIPITOR [Concomitant]
     Active Substance: ATORVASTATIN CALCIUM
     Indication: BLOOD CHOLESTEROL
  4. GINGER ROOT [Concomitant]
     Active Substance: GINGER
     Indication: HYPERTENSION
  5. GARLIC. [Concomitant]
     Active Substance: GARLIC
     Indication: HYPERTENSION
  6. NORVASC [Concomitant]
     Active Substance: AMLODIPINE BESYLATE
  7. GINGER ROOT [Concomitant]
     Active Substance: GINGER
     Indication: ARTHRITIS
     Route: 065

REACTIONS (9)
  - Headache [Unknown]
  - Arthritis [Unknown]
  - Tumour marker increased [Unknown]
  - Hypertension [Unknown]
  - Myalgia [Unknown]
  - Chest discomfort [Unknown]
  - Cough [Unknown]
  - Fatigue [Unknown]
  - Epistaxis [Recovering/Resolving]
